FAERS Safety Report 17225152 (Version 1)
Quarter: 2020Q1

REPORT INFORMATION
  Report Type: Spontaneous
  Country: US (occurrence: US)
  Receive Date: 20200101
  Receipt Date: 20200101
  Transmission Date: 20200409
  Serious: Yes (Disabling)
  Sender: FDA-Public Use
  Company Number: None

PATIENT
  Age: 71 Year
  Sex: Female
  Weight: 76.5 kg

DRUGS (12)
  1. POTASSIUM [Concomitant]
     Active Substance: POTASSIUM
  2. VITAMIN B12 [Concomitant]
     Active Substance: CYANOCOBALAMIN
  3. LEFT UNLOADER KNEE BRACE [Concomitant]
  4. GARLIC EXTRACT [Concomitant]
     Active Substance: GARLIC
  5. ATENOLOL. [Concomitant]
     Active Substance: ATENOLOL
  6. BABY ASPIRIN [Concomitant]
     Active Substance: ASPIRIN
  7. MELOXICAM. [Concomitant]
     Active Substance: MELOXICAM
  8. FAX SEED OIL [Concomitant]
  9. CHLORTHALADONE [Concomitant]
  10. OTEZLA [Concomitant]
     Active Substance: APREMILAST
  11. REPATHA [Suspect]
     Active Substance: EVOLOCUMAB
     Indication: HYPERCHOLESTEROLAEMIA
     Dosage: ?          QUANTITY:1 INJECTION(S);OTHER FREQUENCY:EVERY OTHER WEEK;?
     Route: 058
     Dates: start: 20191101, end: 20191230
  12. GLUCOSAMINE-CHONDROITIN [Concomitant]
     Active Substance: CHONDROITIN SULFATE (BOVINE)\GLUCOSAMINE SULFATE

REACTIONS (5)
  - Arthralgia [None]
  - Muscle spasms [None]
  - Insomnia [None]
  - Pain in extremity [None]
  - Gait disturbance [None]

NARRATIVE: CASE EVENT DATE: 20191230
